FAERS Safety Report 8106864-2 (Version None)
Quarter: 2011Q4

REPORT INFORMATION
  Report Type: 
  Country: None (occurrence: None)
  Receive Date: 20111227
  Receipt Date: 20111018
  Transmission Date: 20120403
  Serious: No
  Sender: FDA-Public Use
  Company Number: PHEH2011US04841

PATIENT
  Age: 60 Year
  Sex: Female
  Weight: 56.7 kg

DRUGS (5)
  1. SIMVASTATIN [Concomitant]
  2. GILENYA [Suspect]
     Indication: MULTIPLE SCLEROSIS
     Dosage: 0.5 MG, QD, ORAL
     Route: 048
     Dates: start: 20101206
  3. ASPIRIN [Concomitant]
  4. MAXZIDE (HYDROCHLOROTHIAZIDE) [Concomitant]
  5. NUVIGIL [Concomitant]

REACTIONS (2)
  - INFLUENZA [None]
  - NAUSEA [None]
